FAERS Safety Report 5013322-0 (Version None)
Quarter: 2006Q2

REPORT INFORMATION
  Report Type: 
  Country: None (occurrence: None)
  Receive Date: 20060530
  Receipt Date: 20060410
  Transmission Date: 20061013
  Serious: No
  Sender: FDA-Public Use
  Company Number: US-GLAXOSMITHKLINE-A0601186A

PATIENT
  Age: 34 Year
  Sex: Female

DRUGS (2)
  1. WELLBUTRIN XL [Suspect]
     Indication: DEPRESSION
     Dosage: 150MG PER DAY
     Route: 048
     Dates: start: 20050404, end: 20050409
  2. PREMARIN [Concomitant]

REACTIONS (4)
  - DIZZINESS [None]
  - FEELING HOT AND COLD [None]
  - HEART RATE INCREASED [None]
  - NAUSEA [None]
